FAERS Safety Report 10177601 (Version 3)
Quarter: 2014Q4

REPORT INFORMATION
  Report Type: Spontaneous
  Country: JP (occurrence: JP)
  Receive Date: 20140516
  Receipt Date: 20141013
  Transmission Date: 20150528
  Serious: Yes (Other)
  Sender: FDA-Public Use
  Company Number: PHHY2014JP059434

PATIENT
  Age: 57 Year
  Sex: Female
  Weight: 64 kg

DRUGS (10)
  1. ABRAXANE [Suspect]
     Active Substance: PACLITAXEL
     Indication: BREAST CANCER
     Dosage: 350 MG, DAILY
     Route: 065
     Dates: start: 20131122, end: 20140404
  2. DECADRON [Concomitant]
     Active Substance: DEXAMETHASONE
     Indication: METASTASES TO BONE
     Dosage: 6.6 MG, UNK
     Route: 065
     Dates: start: 20120507, end: 20140404
  3. TAXOTERE [Concomitant]
     Active Substance: DOCETAXEL
     Indication: METASTASES TO BONE
     Dosage: 100 MG, UNK
     Route: 065
     Dates: start: 20120507, end: 20120929
  4. NEUTROGIN [Concomitant]
     Active Substance: LENOGRASTIM
     Indication: WHITE BLOOD CELL COUNT DECREASED
     Dosage: 100 MG, UNK
     Route: 058
     Dates: start: 20120514, end: 20140502
  5. HERCEPTIN [Suspect]
     Active Substance: TRASTUZUMAB
     Indication: METASTASES TO BONE
     Dosage: 380 MG, DAILY
     Route: 065
     Dates: start: 20131019
  6. CRESTOR [Concomitant]
     Active Substance: ROSUVASTATIN CALCIUM
     Indication: HYPERLIPIDAEMIA
     Dosage: 5 MG, UNK
     Route: 048
     Dates: start: 20111221
  7. ZOMETA [Suspect]
     Active Substance: ZOLEDRONIC ACID
     Indication: METASTASES TO BONE
     Dosage: 4 MG, DAILY
     Route: 041
     Dates: start: 20120312, end: 20140404
  8. SLOW K [Concomitant]
     Active Substance: POTASSIUM CHLORIDE
     Indication: HYPOKALAEMIA
     Dosage: 600 MG, UNK
     Route: 048
     Dates: start: 20140528
  9. HALAVEN [Concomitant]
     Active Substance: ERIBULIN MESYLATE
     Indication: METASTASES TO BONE
     Dosage: 2.4 MG, UNK
     Route: 065
     Dates: start: 20140425, end: 20140815
  10. THIURAGYL [Concomitant]
     Indication: BASEDOW^S DISEASE
     Dosage: 200 MG, UNK
     Route: 048
     Dates: start: 20110706, end: 20140113

REACTIONS (6)
  - Acute kidney injury [Recovered/Resolved]
  - Hypokalaemia [Recovered/Resolved]
  - Hypophosphataemia [Recovered/Resolved]
  - Fanconi syndrome acquired [Recovered/Resolved]
  - Renal impairment [Recovered/Resolved]
  - Hypouricaemia [Recovered/Resolved]

NARRATIVE: CASE EVENT DATE: 201211
